FAERS Safety Report 6804172-0 (Version None)
Quarter: 2010Q2

REPORT INFORMATION
  Report Type: 
  Country: None (occurrence: None)
  Receive Date: 20100628
  Receipt Date: 20070122
  Transmission Date: 20101027
  Serious: No
  Sender: FDA-Public Use
  Company Number: US-PFIZER INC-2007006670

PATIENT
  Sex: Male
  Weight: 83.91 kg

DRUGS (1)
  1. DAYPRO [Suspect]
     Dates: start: 19930101, end: 20060501

REACTIONS (1)
  - ABDOMINAL PAIN UPPER [None]
